FAERS Safety Report 20681772 (Version 1)
Quarter: 2022Q2

REPORT INFORMATION
  Report Type: Report from Study
  Country: US (occurrence: US)
  Receive Date: 20220407
  Receipt Date: 20220407
  Transmission Date: 20220721
  Serious: Yes (Other)
  Sender: FDA-Public Use
  Company Number: US-JNJFOC-20220400991

PATIENT
  Age: 48 Year
  Sex: Female

DRUGS (4)
  1. TREMFYA [Suspect]
     Active Substance: GUSELKUMAB
     Indication: Product used for unknown indication
     Dosage: AT WEEK 0
     Route: 058
     Dates: start: 20211101
  2. TREMFYA [Suspect]
     Active Substance: GUSELKUMAB
     Route: 058
     Dates: start: 20211201
  3. TREMFYA [Suspect]
     Active Substance: GUSELKUMAB
     Route: 058
     Dates: start: 20220201
  4. TREMFYA [Suspect]
     Active Substance: GUSELKUMAB
     Route: 058
     Dates: start: 20220331

REACTIONS (4)
  - Neuropathy peripheral [Recovering/Resolving]
  - Skin plaque [Recovered/Resolved]
  - Arthralgia [Not Recovered/Not Resolved]
  - Swelling [Recovering/Resolving]

NARRATIVE: CASE EVENT DATE: 20220331
